FAERS Safety Report 6439398-1 (Version None)
Quarter: 2009Q4

REPORT INFORMATION
  Report Type: 
  Country: None (occurrence: None)
  Receive Date: 20091113
  Receipt Date: 20091109
  Transmission Date: 20100525
  Serious: Yes (Other)
  Sender: FDA-Public Use
  Company Number: US-ELI_LILLY_AND_COMPANY-US200911002716

PATIENT
  Sex: Male

DRUGS (12)
  1. HUMULIN N [Suspect]
     Dosage: 40 U, EACH MORNING
     Dates: start: 20081101
  2. HUMULIN N [Suspect]
     Dosage: 10 U, EACH EVENING
     Dates: start: 20081101
  3. NORVASC [Concomitant]
     Dosage: 10 MG, DAILY (1/D)
  4. CLONIDINE [Concomitant]
     Dosage: 1 MG, EACH MORNING
  5. CLONIDINE [Concomitant]
     Dosage: 2 MG, EACH EVENING
  6. LABETALOL HCL [Concomitant]
     Dosage: 200 MG, 2/D
  7. LASIX [Concomitant]
     Dosage: 40 MG, 2/D
  8. RAPAMUNE [Concomitant]
     Dosage: 1 MG, QOD
     Dates: start: 20091001, end: 20091001
  9. SYNTHROID [Concomitant]
     Dosage: 50 UG, DAILY (1/D)
  10. DOXAZOSIN MESYLATE [Concomitant]
     Dosage: 1 MG, EACH EVENING
  11. LISINOPRIL [Concomitant]
     Dosage: 10 MG, DAILY (1/D)
  12. ALBUMIN (HUMAN) [Concomitant]
     Indication: RENAL FAILURE
     Dates: start: 20090901

REACTIONS (18)
  - ABNORMAL BEHAVIOUR [None]
  - ANGER [None]
  - ANXIETY [None]
  - BURNING SENSATION [None]
  - DIARRHOEA [None]
  - DYSGEUSIA [None]
  - EYE IRRITATION [None]
  - FEELING ABNORMAL [None]
  - HYPERHIDROSIS [None]
  - HYPOGLYCAEMIC UNCONSCIOUSNESS [None]
  - INSOMNIA [None]
  - LACRIMATION INCREASED [None]
  - MALAISE [None]
  - POOR QUALITY DRUG ADMINISTERED [None]
  - SCREAMING [None]
  - SHOCK HYPOGLYCAEMIC [None]
  - SKIN ODOUR ABNORMAL [None]
  - THYROID DISORDER [None]
